FAERS Safety Report 10079176 (Version 5)
Quarter: 2015Q2

REPORT INFORMATION
  Report Type: Spontaneous
  Country: US (occurrence: US)
  Receive Date: 20140415
  Receipt Date: 20150617
  Transmission Date: 20150821
  Serious: No
  Sender: FDA-Public Use
  Company Number: US-009507513-1404USA007754

PATIENT
  Sex: Male
  Weight: 102.4 kg

DRUGS (1)
  1. PROPECIA [Suspect]
     Active Substance: FINASTERIDE
     Indication: ALOPECIA
     Dosage: 1 MG, UNK
     Route: 048
     Dates: start: 1998, end: 201103

REACTIONS (25)
  - Cognitive disorder [Not Recovered/Not Resolved]
  - Haemoptysis [Unknown]
  - Insomnia [Unknown]
  - Loss of libido [Unknown]
  - Erectile dysfunction [Unknown]
  - Depression [Not Recovered/Not Resolved]
  - Back pain [Unknown]
  - Umbilical hernia [Unknown]
  - Insomnia [Unknown]
  - Arthralgia [Unknown]
  - Blood pressure increased [Unknown]
  - Ejaculation disorder [Unknown]
  - Hyperlipidaemia [Unknown]
  - Myalgia [Unknown]
  - Panic attack [Unknown]
  - Upper respiratory tract infection [Unknown]
  - Semen volume decreased [Unknown]
  - Hernia [Unknown]
  - Hypertension [Unknown]
  - Umbilical hernia repair [Unknown]
  - Anxiety [Unknown]
  - Acne [Unknown]
  - Tachycardia [Unknown]
  - Gastrooesophageal reflux disease [Unknown]
  - Sexual dysfunction [Not Recovered/Not Resolved]

NARRATIVE: CASE EVENT DATE: 2006
